FAERS Safety Report 7789757-X (Version None)
Quarter: 2011Q3

REPORT INFORMATION
  Report Type: 
  Country: None (occurrence: None)
  Receive Date: 20110930
  Receipt Date: 20110114
  Transmission Date: 20111222
  Serious: No
  Sender: FDA-Public Use
  Company Number: US-ASTRAZENECA-2011SE02713

PATIENT
  Age: 61 Year
  Sex: Female
  Weight: 76.2 kg

DRUGS (4)
  1. VITAMIN D [Concomitant]
  2. ARIMIDEX [Suspect]
     Indication: BREAST CANCER
     Route: 048
     Dates: start: 20100501, end: 20100701
  3. CALCIUM CARBONATE [Concomitant]
  4. NORVASTAT [Concomitant]

REACTIONS (9)
  - PAIN [None]
  - AMNESIA [None]
  - WEIGHT INCREASED [None]
  - HEADACHE [None]
  - LACRIMATION INCREASED [None]
  - INSOMNIA [None]
  - HOT FLUSH [None]
  - OSTEOPOROSIS [None]
  - MUSCULOSKELETAL STIFFNESS [None]
